FAERS Safety Report 17151406 (Version 1)
Quarter: 2019Q4

REPORT INFORMATION
  Report Type: Spontaneous
  Country: US (occurrence: US)
  Receive Date: 20191212
  Receipt Date: 20191212
  Transmission Date: 20200122
  Serious: Yes (Hospitalization, Other)
  Sender: FDA-Public Use
  Company Number: None

PATIENT
  Age: 68 Year
  Sex: Female

DRUGS (8)
  1. FOLIC ACID. [Concomitant]
     Active Substance: FOLIC ACID
  2. LISINOPRIL. [Concomitant]
     Active Substance: LISINOPRIL
  3. CLOPIDOGREL [Concomitant]
     Active Substance: CLOPIDOGREL BISULFATE
  4. HUMIRA [Suspect]
     Active Substance: ADALIMUMAB
     Indication: PSORIASIS
     Dosage: ?          OTHER FREQUENCY:EVERY 2 WEEKS;?
     Route: 058
     Dates: start: 20180308
  5. HYDROCO/APAP [Concomitant]
     Active Substance: ACETAMINOPHEN\HYDROCODONE
  6. LORAZEPAM. [Concomitant]
     Active Substance: LORAZEPAM
  7. PRAVASTATIN. [Concomitant]
     Active Substance: PRAVASTATIN
  8. DULOXETINE. [Concomitant]
     Active Substance: DULOXETINE

REACTIONS (1)
  - Joint arthroplasty [None]
